FAERS Safety Report 6133220-9 (Version None)
Quarter: 2009Q1

REPORT INFORMATION
  Report Type: 
  Country: None (occurrence: None)
  Receive Date: 20090325
  Receipt Date: 20090325
  Transmission Date: 20090719
  Serious: Yes (Other)
  Sender: FDA-Public Use
  Company Number: None

PATIENT
  Age: 30 Year
  Sex: Female
  Weight: 57.1532 kg

DRUGS (4)
  1. LEVOTHYROXINE SODIUM [Suspect]
     Indication: HYPOTHYROIDISM
     Dosage: 25 MCG EVERY DAY PO
     Route: 048
     Dates: start: 20090308, end: 20090316
  2. WELLBUTRIN XR [Concomitant]
  3. MULTI-VITAMIN [Concomitant]
  4. CALCIUM [Concomitant]

REACTIONS (7)
  - ANOREXIA [None]
  - ANXIETY [None]
  - CHEST PAIN [None]
  - DYSPNOEA [None]
  - PALPITATIONS [None]
  - PANIC ATTACK [None]
  - PARANOIA [None]
